FAERS Safety Report 11075349 (Version 1)
Quarter: 2015Q2

REPORT INFORMATION
  Report Type: Spontaneous
  Country: NL (occurrence: NL)
  Receive Date: 20150429
  Receipt Date: 20150429
  Transmission Date: 20150821
  Serious: Yes (Hospitalization)
  Sender: FDA-Public Use
  Company Number: NL-IMPAX LABORATORIES, INC-2015-IPXL-00436

PATIENT
  Age: 21 Year
  Sex: Female

DRUGS (4)
  1. BACLOFEN. [Suspect]
     Active Substance: BACLOFEN
     Indication: DRUG DEPENDENCE
     Dosage: 30 MG, DAILY
     Route: 065
  2. BACLOFEN. [Interacting]
     Active Substance: BACLOFEN
     Dosage: 40 MG, DAILY
     Route: 065
  3. GAMMA-HYDROXYBUTYRATE [Interacting]
     Active Substance: 4-HYDROXYBUTANOIC ACID
     Indication: SUBSTANCE ABUSE
     Dosage: 0.33 L (215 G)
     Route: 065
  4. BACLOFEN. [Interacting]
     Active Substance: BACLOFEN
     Dosage: 80 MG, DAILY
     Route: 065

REACTIONS (6)
  - Coma [Recovering/Resolving]
  - Treatment noncompliance [Unknown]
  - Hypotonia [Recovering/Resolving]
  - Bradypnoea [Recovering/Resolving]
  - Off label use [Unknown]
  - Intentional product misuse [Unknown]
